FAERS Safety Report 8756298 (Version 3)
Quarter: 2013Q3

REPORT INFORMATION
  Report Type: Spontaneous
  Country: PE (occurrence: PE)
  Receive Date: 20120828
  Receipt Date: 20130701
  Transmission Date: 20140515
  Serious: Yes (Hospitalization, Other)
  Sender: FDA-Public Use
  Company Number: PE-JNJFOC-20120810923

PATIENT
  Age: 50 Year
  Sex: Female
  Weight: 70 kg

DRUGS (4)
  1. REMICADE [Suspect]
     Indication: RHEUMATOID ARTHRITIS
     Dosage: TOTAL 9 INFUSIONS
     Route: 042
     Dates: start: 20100604
  2. REMICADE [Suspect]
     Indication: RHEUMATOID ARTHRITIS
     Route: 042
     Dates: start: 20120803, end: 20120803
  3. REMICADE [Suspect]
     Indication: RHEUMATOID ARTHRITIS
     Route: 042
     Dates: start: 20110520, end: 20110520
  4. INSULIN [Suspect]
     Indication: DIABETES MELLITUS
     Route: 065

REACTIONS (6)
  - Hypoglycaemia [Recovered/Resolved]
  - Respiratory distress [Unknown]
  - Tachycardia [Unknown]
  - Hypotension [Recovered/Resolved]
  - Infusion related reaction [Unknown]
  - Palpitations [Recovered/Resolved]
